FAERS Safety Report 7608975-4 (Version None)
Quarter: 2011Q3

REPORT INFORMATION
  Report Type: 
  Country: None (occurrence: None)
  Receive Date: 20110714
  Receipt Date: 20110711
  Transmission Date: 20111222
  Serious: Yes (Hospitalization)
  Sender: FDA-Public Use
  Company Number: FR-GLAXOSMITHKLINE-B0732032A

PATIENT
  Sex: Female

DRUGS (8)
  1. POTASSIUM CHLORIDE [Concomitant]
     Dosage: 3UNIT PER DAY
     Route: 065
  2. PAROXETINE HCL [Suspect]
     Indication: PRODUCT USED FOR UNKNOWN INDICATION
     Route: 048
     Dates: end: 20100128
  3. AMLODIPINE BESYLATE [Concomitant]
     Dosage: 5MG PER DAY
     Route: 065
  4. ASPIRIN [Concomitant]
     Dosage: 75MG PER DAY
     Route: 065
  5. TENORMIN [Concomitant]
     Dosage: 100MG PER DAY
     Route: 065
  6. ATORVASTATIN CALCIUM [Concomitant]
     Dosage: 10MG PER DAY
     Route: 065
  7. INDAPAMIDE [Suspect]
     Indication: PRODUCT USED FOR UNKNOWN INDICATION
     Route: 048
     Dates: end: 20100128
  8. ATACAND [Concomitant]
     Dosage: 16MG PER DAY
     Route: 065

REACTIONS (5)
  - PSYCHOMOTOR RETARDATION [None]
  - HYPONATRAEMIA [None]
  - HYPOKALAEMIA [None]
  - HYPOCHLORAEMIA [None]
  - ECCHYMOSIS [None]
